FAERS Safety Report 19773232 (Version 1)
Quarter: 2021Q3

REPORT INFORMATION
  Report Type: Other
  Country: DE (occurrence: DE)
  Receive Date: 20210901
  Receipt Date: 20210901
  Transmission Date: 20211014
  Serious: Yes (Death)
  Sender: FDA-Public Use
  Company Number: DE-ROCHE-2900773

PATIENT

DRUGS (13)
  1. CYCLOPHOSPHAMIDE. [Suspect]
     Active Substance: CYCLOPHOSPHAMIDE
     Indication: DIFFUSE LARGE B-CELL LYMPHOMA
     Route: 065
  2. TOCILIZUMAB. [Suspect]
     Active Substance: TOCILIZUMAB
     Indication: PYREXIA
     Route: 042
  3. PREDNISONE. [Suspect]
     Active Substance: PREDNISONE
     Indication: DIFFUSE LARGE B-CELL LYMPHOMA
     Route: 065
  4. ACYCLOVIR. [Concomitant]
     Active Substance: ACYCLOVIR
     Indication: INFECTION PROPHYLAXIS
  5. POSACONAZOLE [Concomitant]
     Active Substance: POSACONAZOLE
     Indication: INFECTION PROPHYLAXIS
  6. RITUXIMAB. [Suspect]
     Active Substance: RITUXIMAB
     Indication: DIFFUSE LARGE B-CELL LYMPHOMA
     Route: 065
  7. DHAP [Suspect]
     Active Substance: CISPLATIN\CYTARABINE\DEXAMETHASONE
     Indication: DIFFUSE LARGE B-CELL LYMPHOMA
     Dosage: UNK
     Route: 065
     Dates: start: 201811
  8. VINCRISTINE [Suspect]
     Active Substance: VINCRISTINE
     Indication: DIFFUSE LARGE B-CELL LYMPHOMA
     Route: 065
  9. MICAFUNGIN. [Concomitant]
     Active Substance: MICAFUNGIN SODIUM
     Indication: INFECTION PROPHYLAXIS
     Dosage: 50 MG IV
     Route: 042
  10. DOXORUBICIN [Suspect]
     Active Substance: DOXORUBICIN
     Indication: DIFFUSE LARGE B-CELL LYMPHOMA
     Route: 065
  11. METHYLPREDNISOLONE. [Concomitant]
     Active Substance: METHYLPREDNISOLONE
     Indication: PYREXIA
     Dosage: 1000 MG DAILY
  12. FLUDARABINE [Concomitant]
     Active Substance: FLUDARABINE PHOSPHATE
  13. SULFAMETHOXAZOLE/TRIMETHOPRIM [Concomitant]
     Active Substance: SULFAMETHOXAZOLE\TRIMETHOPRIM
     Indication: INFECTION PROPHYLAXIS

REACTIONS (17)
  - Bordetella infection [Fatal]
  - Neutropenia [Fatal]
  - Escherichia sepsis [Fatal]
  - Upper respiratory tract infection [Fatal]
  - Fungal infection [Fatal]
  - Urinary tract infection [Fatal]
  - Central nervous system infection [Fatal]
  - Sepsis [Fatal]
  - Candida infection [Fatal]
  - Pneumonia fungal [Fatal]
  - Cytokine release syndrome [Fatal]
  - Aspergillus infection [Fatal]
  - Septic shock [Fatal]
  - Colitis [Fatal]
  - Immune effector cell-associated neurotoxicity syndrome [Fatal]
  - Myelosuppression [Fatal]
  - Loss of consciousness [Fatal]
